FAERS Safety Report 5116317-1 (Version None)
Quarter: 2006Q3

REPORT INFORMATION
  Report Type: 
  Country: None (occurrence: None)
  Receive Date: 20060927
  Receipt Date: 20060823
  Transmission Date: 20061208
  Serious: No
  Sender: FDA-Public Use
  Company Number: US-MERCK-0608USA05593

PATIENT
  Age: 61 Year
  Sex: Female
  Weight: 120 kg

DRUGS (7)
  1. ZOCOR [Suspect]
     Indication: BLOOD CHOLESTEROL INCREASED
     Route: 048
     Dates: start: 20050801
  2. ALDACTONE [Concomitant]
     Route: 065
  3. PLAVIX [Concomitant]
     Route: 065
  4. CORTIRON [Concomitant]
     Route: 065
  5. NOVOLOG [Concomitant]
     Route: 065
  6. LANTUS [Concomitant]
     Route: 065
  7. LASIX [Concomitant]
     Route: 048
     Dates: start: 20060816

REACTIONS (2)
  - BREAST ENLARGEMENT [None]
  - BREAST SWELLING [None]
